FAERS Safety Report 15201229 (Version 1)
Quarter: 2018Q3

REPORT INFORMATION
  Report Type: Spontaneous
  Country: US (occurrence: US)
  Receive Date: 20180726
  Receipt Date: 20180726
  Transmission Date: 20181010
  Serious: No
  Sender: FDA-Public Use
  Company Number: US-SHIRE-US201828398

PATIENT
  Age: 65 Year

DRUGS (1)
  1. PENTASA [Suspect]
     Active Substance: MESALAMINE
     Indication: CROHN^S DISEASE
     Dosage: 500 MG, 2X/DAY:BID
     Route: 065

REACTIONS (2)
  - Abdominal pain upper [Unknown]
  - Inability to afford medication [Unknown]
